FAERS Safety Report 12801000 (Version 1)
Quarter: 2016Q4

REPORT INFORMATION
  Report Type: Spontaneous
  Country: US (occurrence: US)
  Receive Date: 20161003
  Receipt Date: 20161003
  Transmission Date: 20170207
  Serious: Yes (Other)
  Sender: FDA-Public Use
  Company Number: US-BEH-2016073780

PATIENT
  Age: 71 Year
  Sex: Female

DRUGS (30)
  1. OXYGEN. [Concomitant]
     Active Substance: OXYGEN
  2. EPIPEN [Concomitant]
     Active Substance: EPINEPHRINE
  3. DALIRESP [Concomitant]
     Active Substance: ROFLUMILAST
  4. GABAPENTIN. [Concomitant]
     Active Substance: GABAPENTIN
  5. NORCO [Concomitant]
     Active Substance: ACETAMINOPHEN\HYDROCODONE BITARTRATE
  6. VOLTAREN [Concomitant]
     Active Substance: DICLOFENAC SODIUM
  7. TIZANIDINE. [Concomitant]
     Active Substance: TIZANIDINE
  8. VITAMIN E                          /00110501/ [Concomitant]
     Active Substance: TOCOPHEROL
  9. OMEPRAZOLE. [Concomitant]
     Active Substance: OMEPRAZOLE
  10. LIDOCAINE. [Concomitant]
     Active Substance: LIDOCAINE
  11. FISH OIL [Concomitant]
     Active Substance: FISH OIL
  12. DIPHENHYDRAMINE. [Concomitant]
     Active Substance: DIPHENHYDRAMINE
  13. SPIRIVA [Concomitant]
     Active Substance: TIOTROPIUM BROMIDE MONOHYDRATE
  14. ELIQUIS [Concomitant]
     Active Substance: APIXABAN
  15. FENTANYL. [Concomitant]
     Active Substance: FENTANYL
  16. FLONASE [Concomitant]
     Active Substance: FLUTICASONE PROPIONATE
  17. PROAIR HFA [Concomitant]
     Active Substance: ALBUTEROL SULFATE
  18. TRAZODONE [Concomitant]
     Active Substance: TRAZODONE HYDROCHLORIDE
  19. BIOTIN [Concomitant]
     Active Substance: BIOTIN
  20. ZEMAIRA [Suspect]
     Active Substance: .ALPHA.1-PROTEINASE INHIBITOR HUMAN
     Indication: ALPHA-1 ANTI-TRYPSIN DEFICIENCY
     Dosage: 60 MG/KG, QOW
     Route: 042
     Dates: start: 20111004
  21. SODIUM CHLORIDE. [Concomitant]
     Active Substance: SODIUM CHLORIDE
  22. BUSPIRONE [Concomitant]
     Active Substance: BUSPIRONE HYDROCHLORIDE
  23. GARLIC                             /01570501/ [Concomitant]
     Active Substance: GARLIC
  24. ALBUTEROL                          /00139501/ [Concomitant]
     Active Substance: ALBUTEROL
  25. GLUCOSAMINE CHONDROITIN            /01430901/ [Concomitant]
  26. SYMBICORT [Concomitant]
     Active Substance: BUDESONIDE\FORMOTEROL FUMARATE DIHYDRATE
  27. HYDROCHLOROTHIAZIDE. [Concomitant]
     Active Substance: HYDROCHLOROTHIAZIDE
  28. PYRIDOXINE [Concomitant]
     Active Substance: PYRIDOXINE
  29. CALCIUM [Concomitant]
     Active Substance: CALCIUM
  30. VITAMIN B12 [Concomitant]
     Active Substance: CYANOCOBALAMIN

REACTIONS (1)
  - Hepatic cancer metastatic [Unknown]

NARRATIVE: CASE EVENT DATE: 20160918
